FAERS Safety Report 24869181 (Version 2)
Quarter: 2025Q1

REPORT INFORMATION
  Report Type: Spontaneous
  Country: IN (occurrence: IN)
  Receive Date: 20250121
  Receipt Date: 20250123
  Transmission Date: 20250408
  Serious: Yes (Death, Other)
  Sender: BIOMARIN
  Company Number: IN-SA-2024SA336731

PATIENT

DRUGS (2)
  1. LARONIDASE [Suspect]
     Active Substance: LARONIDASE
     Indication: Mucopolysaccharidosis I
     Route: 042
     Dates: start: 201003
  2. LARONIDASE [Suspect]
     Active Substance: LARONIDASE
     Dosage: 4 DF, QW
     Route: 042
     Dates: start: 2016, end: 20240518

REACTIONS (5)
  - Respiratory distress [Fatal]
  - Hypoxia [Fatal]
  - Tracheostomy malfunction [Fatal]
  - Post procedural discomfort [Unknown]
  - Tracheostomy [Unknown]

NARRATIVE: CASE EVENT DATE: 20240521
